FAERS Safety Report 5061763-8 (Version None)
Quarter: 2006Q3

REPORT INFORMATION
  Report Type: 
  Country: None (occurrence: None)
  Receive Date: 20060726
  Receipt Date: 20060127
  Transmission Date: 20061208
  Serious: No
  Sender: FDA-Public Use
  Company Number: A-US2005-10852

PATIENT
  Age: 60 Year
  Sex: Female
  Weight: 88 kg

DRUGS (4)
  1. DYAZIDE [Suspect]
     Indication: DRUG USE FOR UNKNOWN INDICATION
     Route: 065
     Dates: start: 20050501
  2. TRACLEER [Suspect]
     Indication: PULMONARY HYPERTENSION
     Dosage: 125MG TWICE PER DAY
     Route: 048
  3. SINGULAIR [Suspect]
     Indication: DRUG USE FOR UNKNOWN INDICATION
     Route: 065
     Dates: start: 20050501
  4. ADVAIR DISKUS 100/50 [Concomitant]
     Route: 055

REACTIONS (2)
  - BACK PAIN [None]
  - OEDEMA PERIPHERAL [None]
